FAERS Safety Report 8762765 (Version 1)
Quarter: 2012Q4

REPORT INFORMATION
  Report Type: 
  Country: US (occurrence: US)
  Receive Date: 20120828
  Receipt Date: 20120828
  Transmission Date: 20130627
  Serious: No
  Sender: FDA-Public Use
  Company Number: US-ABBOTT-12P-163-0969848-00

PATIENT
  Age: 76 Year
  Sex: Male
  Weight: 70.82 kg

DRUGS (2)
  1. ANDROGEL 1.62% [Suspect]
     Indication: BLOOD TESTOSTERONE DECREASED
     Dosage: taking in evening
     Route: 061
     Dates: start: 20120810
  2. MANY UNKNOWN OTHER MEDICATIONS [Concomitant]
     Indication: PRODUCT USED FOR UNKNOWN INDICATION
     Dosage: Reporter declined to elaborate what many other medications were.

REACTIONS (2)
  - Drug administered at inappropriate site [Not Recovered/Not Resolved]
  - Abnormal behaviour [Not Recovered/Not Resolved]
